FAERS Safety Report 6036487-0 (Version None)
Quarter: 2009Q1

REPORT INFORMATION
  Report Type: 
  Country: None (occurrence: None)
  Receive Date: 20090112
  Receipt Date: 20080617
  Transmission Date: 20090719
  Serious: Yes (Hospitalization)
  Sender: FDA-Public Use
  Company Number: 133476

PATIENT
  Age: 79 Year
  Sex: Female

DRUGS (3)
  1. NIPENT [Suspect]
     Indication: CHRONIC LYMPHOCYTIC LEUKAEMIA
     Dates: start: 20070221
  2. (MABTHERA) [Suspect]
     Indication: CHRONIC LYMPHOCYTIC LEUKAEMIA
     Dates: start: 20070221
  3. ONDANSETRON [Suspect]
     Dosage: GIVEN 15 MINUTES PRIOR TO CHEMOTHERAPY, INTRAVENOUS
     Route: 042
     Dates: start: 20070221

REACTIONS (3)
  - ACUTE CORONARY SYNDROME [None]
  - DISEASE PROGRESSION [None]
  - VENTRICULAR FIBRILLATION [None]
